FAERS Safety Report 19423026 (Version 1)
Quarter: 2021Q2

REPORT INFORMATION
  Report Type: Spontaneous
  Country: NL (occurrence: NL)
  Receive Date: 20210616
  Receipt Date: 20210616
  Transmission Date: 20210717
  Serious: Yes (Congenital Anomaly)
  Sender: FDA-Public Use
  Company Number: NL-TEVA-2021-NL-1921553

PATIENT
  Sex: Male

DRUGS (3)
  1. FLUOXETINE CAPSULE 20MG / BRAND NAME NOT SPECIFIED [Suspect]
     Active Substance: FLUOXETINE HYDROCHLORIDE
     Indication: POST-TRAUMATIC STRESS DISORDER
     Dosage: 40 MILLIGRAM DAILY; THERAPY START DATE AND END DATE : ASKU
  2. FLUOXETINE CAPSULE 20MG / BRAND NAME NOT SPECIFIED [Suspect]
     Active Substance: FLUOXETINE HYDROCHLORIDE
     Indication: DEPRESSED MOOD
  3. QUETIAPINE TABLET FO  25MG / BRAND NAME NOT SPECIFIED [Concomitant]
     Active Substance: QUETIAPINE
     Dosage: 50 MILLIGRAM DAILY; THERAPY START DATE AND END DATE : ASKU

REACTIONS (3)
  - Maternal exposure during pregnancy [Unknown]
  - Hypoplastic left heart syndrome [Unknown]
  - Abortion induced [Unknown]
